FAERS Safety Report 8144250-X (Version None)
Quarter: 2012Q1

REPORT INFORMATION
  Report Type: 
  Country: None (occurrence: None)
  Receive Date: 20120217
  Receipt Date: 20120214
  Transmission Date: 20120608
  Serious: Yes (Death, Other)
  Sender: FDA-Public Use
  Company Number: DE-NAPPMUNDI-DEU-2012-0008654

PATIENT
  Age: 81 Year
  Sex: Male

DRUGS (6)
  1. HALDOL [Suspect]
     Indication: HALLUCINATION
     Dosage: 5 DF, UNK
  2. AYURVEDIC PREPARATION NOS [Concomitant]
  3. MORPHINE SULFATE [Interacting]
     Indication: RESTLESSNESS
     Dosage: 2.5 MG, SINGLE
     Route: 058
     Dates: start: 20090819, end: 20090819
  4. MORPHINE [Interacting]
     Indication: DYSPNOEA
     Dosage: UNK, PM
     Route: 048
     Dates: start: 20090818, end: 20090818
  5. NEUROCIL                           /00038602/ [Interacting]
     Indication: RESTLESSNESS
     Dosage: 0.5 MG, TWICE
     Route: 058
     Dates: start: 20090819, end: 20090819
  6. MIDAZOLAM [Interacting]
     Indication: RESTLESSNESS
     Dosage: 5 MG, SINGLE
     Route: 058
     Dates: start: 20090819, end: 20090819

REACTIONS (7)
  - COMA [None]
  - DRUG INTERACTION [None]
  - STUPOR [None]
  - ENCEPHALOPATHY [None]
  - MULTIPLE DRUG OVERDOSE [None]
  - CARDIAC ARREST [None]
  - SEDATION [None]
